FAERS Safety Report 4345213-2 (Version None)
Quarter: 2004Q2

REPORT INFORMATION
  Report Type: 
  Country: None (occurrence: None)
  Receive Date: 20040420
  Receipt Date: 20040407
  Transmission Date: 20050107
  Serious: Yes (Death)
  Sender: FDA-Public Use
  Company Number: 04H-163-0257122-00

PATIENT
  Sex: Male

DRUGS (3)
  1. DEMEROL [Suspect]
     Dosage: 100 MG, 4 DOSES PER DAY, ^IV FOR SELF INJECTION^; 100 MG, EVERY 4 TO 6 HOURS, ^IV FOR SELF INJECTION
     Route: 042
     Dates: start: 20000421, end: 20000425
  2. DEMEROL [Suspect]
     Dosage: 100 MG, 4 DOSES PER DAY, ^IV FOR SELF INJECTION^; 100 MG, EVERY 4 TO 6 HOURS, ^IV FOR SELF INJECTION
     Route: 042
     Dates: start: 20000425, end: 20040401
  3. PROMETHAZINE [Concomitant]

REACTIONS (2)
  - ACCIDENTAL OVERDOSE [None]
  - MEDICATION ERROR [None]
